FAERS Safety Report 21639167 (Version 2)
Quarter: 2022Q4

REPORT INFORMATION
  Report Type: Spontaneous
  Country: US (occurrence: US)
  Receive Date: 20221124
  Receipt Date: 20221125
  Transmission Date: 20230112
  Serious: No
  Sender: FDA-Public Use
  Company Number: US-002147023-NVSC2022US260981

PATIENT
  Age: 75 Year

DRUGS (1)
  1. BIMATOPROST [Suspect]
     Active Substance: BIMATOPROST
     Indication: Product used for unknown indication
     Dosage: 5 ML
     Route: 065

REACTIONS (4)
  - Alopecia [Unknown]
  - Stress [Unknown]
  - Madarosis [Unknown]
  - Product packaging quantity issue [Unknown]
